FAERS Safety Report 18534459 (Version 2)
Quarter: 2020Q4

REPORT INFORMATION
  Report Type: Spontaneous
  Country: IT (occurrence: IT)
  Receive Date: 20201123
  Receipt Date: 20201130
  Transmission Date: 20210114
  Serious: Yes (Hospitalization, Other)
  Sender: FDA-Public Use
  Company Number: IT-INCYTE CORPORATION-2020IN011478

PATIENT

DRUGS (1)
  1. JAKAVI [Suspect]
     Active Substance: RUXOLITINIB
     Indication: MYELOFIBROSIS
     Dosage: UNK
     Route: 065

REACTIONS (6)
  - Myeloid metaplasia [Unknown]
  - Drug resistance [Unknown]
  - Splenic marginal zone lymphoma [Unknown]
  - Second primary malignancy [Unknown]
  - Hairy cell leukaemia [Unknown]
  - Non-Hodgkin^s lymphoma [Unknown]
